FAERS Safety Report 15767358 (Version 1)
Quarter: 2018Q4

REPORT INFORMATION
  Report Type: Report from Study
  Country: CA (occurrence: CA)
  Receive Date: 20181227
  Receipt Date: 20181227
  Transmission Date: 20190205
  Serious: Yes (Other)
  Sender: FDA-Public Use
  Company Number: PHHY2018CA192903

PATIENT
  Age: 50 Year
  Sex: Female

DRUGS (2)
  1. CAPECITABINE. [Suspect]
     Active Substance: CAPECITABINE
     Indication: PRODUCT USED FOR UNKNOWN INDICATION
     Dosage: UNK
     Route: 065
     Dates: start: 20180508
  2. ANASTROZOLE. [Suspect]
     Active Substance: ANASTROZOLE
     Indication: BREAST CANCER
     Dosage: UNK
     Route: 048
     Dates: start: 201301

REACTIONS (20)
  - Urge incontinence [Not Recovered/Not Resolved]
  - Human epidermal growth factor receptor negative [Unknown]
  - Pelvic mass [Unknown]
  - Hepatic steatosis [Unknown]
  - Uterine enlargement [Unknown]
  - Progesterone receptor assay positive [Unknown]
  - Ovarian mass [Unknown]
  - Clubbing [Unknown]
  - Carbohydrate antigen 15-3 increased [Unknown]
  - Uterine leiomyoma [Unknown]
  - Arthralgia [Unknown]
  - Oestrogen receptor assay positive [Unknown]
  - Breast cancer metastatic [Unknown]
  - Abdominal lymphadenopathy [Unknown]
  - Frequent bowel movements [Not Recovered/Not Resolved]
  - Metastases to liver [Unknown]
  - Vertebral column mass [Unknown]
  - Back pain [Unknown]
  - Palmar-plantar erythrodysaesthesia syndrome [Unknown]
  - Dysuria [Not Recovered/Not Resolved]

NARRATIVE: CASE EVENT DATE: 201701
